FAERS Safety Report 12610051 (Version 3)
Quarter: 2016Q4

REPORT INFORMATION
  Report Type: Spontaneous
  Country: JP (occurrence: JP)
  Receive Date: 20160801
  Receipt Date: 20161102
  Transmission Date: 20170207
  Serious: Yes (Death)
  Sender: FDA-Public Use
  Company Number: JP-ROCHE-1806079

PATIENT
  Age: 72 Year
  Sex: Female
  Weight: 48 kg

DRUGS (50)
  1. HALCION [Concomitant]
     Active Substance: TRIAZOLAM
     Route: 048
     Dates: start: 20160315, end: 20160315
  2. NOVAMIN (JAPAN) [Concomitant]
     Route: 048
     Dates: start: 20160303, end: 20160307
  3. BIO-THREE [Concomitant]
     Active Substance: HERBALS
     Route: 048
     Dates: start: 20160318, end: 20160329
  4. NOVAMIN (JAPAN) [Concomitant]
     Route: 048
     Dates: start: 20160308, end: 20160308
  5. URSODEOXYCHOLIC ACID [Concomitant]
     Active Substance: URSODIOL
     Route: 048
     Dates: start: 20160310, end: 20160328
  6. CALONAL [Concomitant]
     Active Substance: ACETAMINOPHEN
     Route: 048
     Dates: start: 20160310, end: 20160314
  7. KAYTWO N [Concomitant]
     Active Substance: MENATETRENONE
     Dosage: THE FRACTIONATION DOSE FREQUENCY IS UNCERTAIN.
     Route: 041
     Dates: start: 20160301, end: 20160301
  8. OMEPRAZOLE. [Concomitant]
     Active Substance: OMEPRAZOLE
     Dosage: THE FRACTIONATION DOSE FREQUENCY IS UNCERTAIN.
     Route: 042
     Dates: start: 20160303, end: 20160303
  9. LASIX [Concomitant]
     Active Substance: FUROSEMIDE
     Dosage: THE FRACTIONATION DOSE FREQUENCY IS UNCERTAIN.
     Route: 042
     Dates: start: 20160309, end: 20160325
  10. LIVACT [Concomitant]
     Active Substance: AMINO ACIDS
     Route: 048
     Dates: start: 20160302, end: 20160307
  11. CALONAL [Concomitant]
     Active Substance: ACETAMINOPHEN
     Route: 048
     Dates: start: 20160316, end: 20160328
  12. DEXTROSE, SODIUM CHLORIDE, AND POTASSIUM CHLORIDE [Concomitant]
     Active Substance: DEXTROSE\POTASSIUM CHLORIDE\SODIUM CHLORIDE
     Dosage: THE FRACTIONATION DOSE FREQUENCY IS UNCERTAIN.
     Route: 065
     Dates: start: 20160302, end: 20160304
  13. ENDOXAN [Concomitant]
     Active Substance: CYCLOPHOSPHAMIDE
     Indication: MICROSCOPIC POLYANGIITIS
  14. PEGASYS [Suspect]
     Active Substance: PEGINTERFERON ALFA-2A
     Indication: HEPATITIS C
     Route: 058
     Dates: start: 20160301, end: 20160329
  15. SAHNE [Concomitant]
     Dosage: ACCORDING TO THE PHYSICIAN INSTRUCTION
     Route: 003
     Dates: start: 20160301, end: 20160301
  16. LIVACT [Concomitant]
     Active Substance: AMINO ACIDS
     Route: 048
     Dates: start: 20160309, end: 20160314
  17. ALLOID G [Concomitant]
     Active Substance: SODIUM ALGINATE
     Route: 048
     Dates: start: 20160309, end: 20160404
  18. ZINC OXIDE. [Concomitant]
     Active Substance: ZINC OXIDE
     Dosage: FRACTIONATION DOSE UNCERTAIN FREQUENCY AND WHOLE BODY
     Route: 003
     Dates: start: 20160316, end: 20160316
  19. BROMHEXINE HYDROCHLORIDE [Concomitant]
     Active Substance: BROMHEXINE HYDROCHLORIDE
     Dosage: ACCORDING TO THE PHYSICIAN INSTRUCTION
     Route: 055
     Dates: start: 20160324, end: 20160325
  20. PARIET [Concomitant]
     Active Substance: RABEPRAZOLE SODIUM
     Route: 048
     Dates: start: 20160329, end: 20160404
  21. ZOSYN [Concomitant]
     Active Substance: PIPERACILLIN SODIUM\TAZOBACTAM SODIUM
     Dosage: THE FRACTIONATION DOSE FREQUENCY IS UNCERTAIN.
     Route: 041
     Dates: start: 20160310, end: 20160310
  22. PREDNISOLONE. [Concomitant]
     Active Substance: PREDNISOLONE
     Route: 065
  23. HALCION [Concomitant]
     Active Substance: TRIAZOLAM
     Route: 048
     Dates: start: 20160316, end: 20160404
  24. ALLOID G [Concomitant]
     Active Substance: SODIUM ALGINATE
     Route: 048
     Dates: start: 20160303, end: 20160307
  25. PREDONINE [Concomitant]
     Active Substance: PREDNISOLONE\PREDNISOLONE ACETATE\PREDNISOLONE SODIUM SUCCINATE
     Route: 048
     Dates: start: 20160308, end: 20160314
  26. PREDONINE [Concomitant]
     Active Substance: PREDNISOLONE\PREDNISOLONE ACETATE\PREDNISOLONE SODIUM SUCCINATE
     Route: 048
     Dates: start: 20160315, end: 20160404
  27. NEXIUM [Concomitant]
     Active Substance: ESOMEPRAZOLE MAGNESIUM
     Route: 048
     Dates: start: 20160308, end: 20160314
  28. URSO [Concomitant]
     Active Substance: URSODIOL
     Route: 048
     Dates: start: 20160329, end: 20160404
  29. LEXAPRO [Concomitant]
     Active Substance: ESCITALOPRAM OXALATE
     Route: 048
     Dates: start: 20160329, end: 20160404
  30. KCL CORRECTIVE [Concomitant]
     Dosage: THE FRACTIONATION DOSE FREQUENCY IS UNCERTAIN.
     Route: 007
     Dates: start: 20160311, end: 20160312
  31. NOVAMIN (JAPAN) [Concomitant]
     Route: 048
     Dates: start: 20160309, end: 20160328
  32. AMLODIPINE [Concomitant]
     Active Substance: AMLODIPINE BESYLATE
     Route: 048
     Dates: start: 20160308, end: 20160404
  33. CALONAL [Concomitant]
     Active Substance: ACETAMINOPHEN
     Route: 048
     Dates: start: 20160315, end: 20160315
  34. KAYTWO N [Concomitant]
     Active Substance: MENATETRENONE
     Dosage: THE FRACTIONATION DOSE FREQUENCY IS UNCERTAIN.
     Route: 041
     Dates: start: 20160302, end: 20160401
  35. OMEPRAZOLE. [Concomitant]
     Active Substance: OMEPRAZOLE
     Dosage: THE FRACTIONATION DOSE FREQUENCY IS UNCERTAIN.
     Route: 042
     Dates: start: 20160304, end: 20160308
  36. HALCION [Concomitant]
     Active Substance: TRIAZOLAM
     Route: 048
     Dates: start: 20160229, end: 20160314
  37. LIVACT [Concomitant]
     Active Substance: AMINO ACIDS
     Route: 048
     Dates: start: 20160308, end: 20160308
  38. ALLOID G [Concomitant]
     Active Substance: SODIUM ALGINATE
     Route: 048
     Dates: start: 20160308, end: 20160308
  39. ZINC OXIDE. [Concomitant]
     Active Substance: ZINC OXIDE
     Dosage: FRACTIONATION DOSE UNCERTAIN FREQUENCY AND WHOLE BODY
     Route: 003
     Dates: start: 20160314, end: 20160314
  40. ASPARA POTASSIUM [Concomitant]
     Active Substance: POTASSIUM ASPARTATE
     Route: 048
     Dates: start: 20160318, end: 20160329
  41. SEROQUEL [Concomitant]
     Active Substance: QUETIAPINE FUMARATE
     Route: 048
     Dates: start: 20160321, end: 20160404
  42. DEXTROSE, SODIUM CHLORIDE, AND POTASSIUM CHLORIDE [Concomitant]
     Active Substance: DEXTROSE\POTASSIUM CHLORIDE\SODIUM CHLORIDE
     Dosage: THE FRACTIONATION DOSE FREQUENCY IS UNCERTAIN.
     Route: 041
     Dates: start: 20160305, end: 20160310
  43. KCL CORRECTIVE [Concomitant]
     Dosage: THE FRACTIONATION DOSE FREQUENCY IS UNCERTAIN.
     Route: 007
     Dates: start: 20160313, end: 20160313
  44. TAZOPIPE [Concomitant]
     Active Substance: PIPERACILLIN SODIUM\TAZOBACTAM SODIUM
     Dosage: THE FRACTIONATION DOSE FREQUENCY IS UNCERTAIN.
     Route: 041
     Dates: start: 20160316, end: 20160322
  45. NEO-MINOPHAGEN C [Concomitant]
     Active Substance: AMMONIUM GLYCYRRHIZATE
     Dosage: THE FRACTIONATION DOSE FREQUENCY IS UNCERTAIN. ?DOSE INTERVAL UNCERTAINTY
     Route: 042
     Dates: start: 20160301, end: 20160401
  46. AMINOLEBAN [Concomitant]
     Active Substance: AMINO ACIDS
     Dosage: THE FRACTIONATION DOSE FREQUENCY IS UNCERTAIN.
     Route: 041
     Dates: start: 20160301, end: 20160322
  47. PRIMPERAN [Concomitant]
     Active Substance: METOCLOPRAMIDE HYDROCHLORIDE
     Dosage: THE FRACTIONATION DOSE FREQUENCY IS UNCERTAIN.
     Route: 041
     Dates: start: 20160303, end: 20160303
  48. ZOSYN [Concomitant]
     Active Substance: PIPERACILLIN SODIUM\TAZOBACTAM SODIUM
     Dosage: THE FRACTIONATION DOSE FREQUENCY IS UNCERTAIN.
     Route: 041
     Dates: start: 20160311, end: 20160315
  49. SOLDACTONE [Concomitant]
     Active Substance: CANRENOATE POTASSIUM
     Dosage: THE FRACTIONATION DOSE FREQUENCY IS UNCERTAIN.
     Route: 042
     Dates: start: 20160311, end: 20160325
  50. POLARAMINE [Concomitant]
     Active Substance: DEXCHLORPHENIRAMINE MALEATE
     Dosage: THE FRACTIONATION DOSE FREQUENCY IS UNCERTAIN.
     Route: 041
     Dates: start: 20160321, end: 20160321

REACTIONS (2)
  - Interstitial lung disease [Fatal]
  - Respiratory failure [Fatal]

NARRATIVE: CASE EVENT DATE: 20160322
